FAERS Safety Report 10050004 (Version 15)
Quarter: 2018Q2

REPORT INFORMATION
  Report Type: Report from Study
  Country: CA (occurrence: CA)
  Receive Date: 20140401
  Receipt Date: 20180502
  Transmission Date: 20180711
  Serious: Yes (Death, Other)
  Sender: FDA-Public Use
  Company Number: PHHY2011CA09138

PATIENT
  Age: 36 Year
  Sex: Male

DRUGS (9)
  1. SANDOSTATIN [Suspect]
     Active Substance: OCTREOTIDE ACETATE
     Indication: CARCINOID TUMOUR PULMONARY
     Dosage: 100 UG, TID
     Route: 058
     Dates: start: 20110119, end: 20110201
  2. SANDOSTATIN LAR DEPOT [Suspect]
     Active Substance: OCTREOTIDE ACETATE
     Dosage: 40 MG, QMO
     Route: 030
     Dates: start: 20160729, end: 20160824
  3. SANDOSTATIN LAR DEPOT [Suspect]
     Active Substance: OCTREOTIDE ACETATE
     Dosage: 60 MG, QMO
     Route: 030
  4. SUTENT [Concomitant]
     Active Substance: SUNITINIB MALATE
     Indication: PRODUCT USED FOR UNKNOWN INDICATION
     Route: 065
  5. DILAUDID [Concomitant]
     Active Substance: HYDROMORPHONE HYDROCHLORIDE
     Indication: PRODUCT USED FOR UNKNOWN INDICATION
     Route: 065
  6. BISOPROLOL [Concomitant]
     Active Substance: BISOPROLOL
     Indication: NEOPLASM
     Dosage: 10 MG, QD
     Route: 048
     Dates: start: 2017
  7. SANDOSTATIN LAR DEPOT [Suspect]
     Active Substance: OCTREOTIDE ACETATE
     Indication: CARCINOID TUMOUR PULMONARY
     Dosage: 20 MG, QMO
     Route: 030
     Dates: start: 20110218, end: 20160620
  8. NAPROSYN [Concomitant]
     Active Substance: NAPROXEN
     Indication: PRODUCT USED FOR UNKNOWN INDICATION
     Dosage: ONCE OR TWO TIMES A DAY
     Route: 065
  9. CEFTRIAXONE. [Suspect]
     Active Substance: CEFTRIAXONE
     Indication: BACTERIAL INFECTION
     Dosage: UNK
     Route: 065

REACTIONS (23)
  - Cough [Recovering/Resolving]
  - Blood pressure diastolic increased [Unknown]
  - Weight decreased [Unknown]
  - Needle issue [Unknown]
  - Abdominal pain upper [Unknown]
  - Death [Fatal]
  - Neutrophil count decreased [Unknown]
  - Faeces soft [Unknown]
  - Blood pressure increased [Unknown]
  - Chest pain [Unknown]
  - Bacterial infection [Unknown]
  - Erythema [Unknown]
  - Injection site pain [Unknown]
  - Pericarditis [Recovered/Resolved]
  - Chills [Unknown]
  - Heart rate increased [Unknown]
  - Neoplasm of thymus [Unknown]
  - Influenza [Unknown]
  - Blood pressure systolic increased [Unknown]
  - Tremor [Unknown]
  - Hypersensitivity [Unknown]
  - Muscle injury [Unknown]
  - Headache [Unknown]

NARRATIVE: CASE EVENT DATE: 20130823
